FAERS Safety Report 22136355 (Version 1)
Quarter: 2023Q1

REPORT INFORMATION
  Report Type: Spontaneous
  Country: DE (occurrence: DE)
  Receive Date: 20230324
  Receipt Date: 20230324
  Transmission Date: 20230417
  Serious: Yes (Other)
  Sender: FDA-Public Use
  Company Number: DE-002147023-NVSC2023DE064834

PATIENT
  Age: 55 Year
  Sex: Female

DRUGS (12)
  1. ETORICOXIB [Suspect]
     Active Substance: ETORICOXIB
     Indication: Langerhans^ cell histiocytosis
     Dosage: 60 MG, QD
     Route: 048
  2. ETORICOXIB [Suspect]
     Active Substance: ETORICOXIB
     Dosage: 60 MG, QD (SECOND EPISODE)
     Route: 048
  3. ETORICOXIB [Suspect]
     Active Substance: ETORICOXIB
     Dosage: 60 MG, QD (THIRD EPISODE)
     Route: 048
  4. PIOGLITAZONE [Suspect]
     Active Substance: PIOGLITAZONE
     Indication: Langerhans^ cell histiocytosis
     Dosage: 30 MG, QD
     Route: 048
  5. PIOGLITAZONE [Suspect]
     Active Substance: PIOGLITAZONE
     Dosage: 30 MG, QD (SECOND DOSE)
     Route: 048
  6. PIOGLITAZONE [Suspect]
     Active Substance: PIOGLITAZONE
     Dosage: 30 MG, QD (THIRD DOSE)
     Route: 048
  7. TROFOSFAMIDE [Suspect]
     Active Substance: TROFOSFAMIDE
     Indication: Langerhans^ cell histiocytosis
     Dosage: 50 MG, TID
     Route: 048
  8. TROFOSFAMIDE [Suspect]
     Active Substance: TROFOSFAMIDE
     Dosage: 50 MG, TID (SECOND EPISODE)
     Route: 048
  9. TROFOSFAMIDE [Suspect]
     Active Substance: TROFOSFAMIDE
     Dosage: 50 MG, TID (THIRD EPISODE)
     Route: 048
  10. DEXAMETHASONE [Suspect]
     Active Substance: DEXAMETHASONE
     Indication: Langerhans^ cell histiocytosis
     Dosage: 0.5 MG, QD
     Route: 048
  11. DEXAMETHASONE [Suspect]
     Active Substance: DEXAMETHASONE
     Dosage: 0.5 MG, QD (SECOND EPISODE)
     Route: 048
  12. DEXAMETHASONE [Suspect]
     Active Substance: DEXAMETHASONE
     Dosage: 0.5 MG, QD (THIRD EPISODE)
     Route: 048

REACTIONS (3)
  - Neutropenia [Recovered/Resolved]
  - Oedema [Recovered/Resolved]
  - Product use in unapproved indication [Unknown]
